FAERS Safety Report 6213855-5 (Version None)
Quarter: 2009Q2

REPORT INFORMATION
  Report Type: 
  Country: None (occurrence: None)
  Receive Date: 20090601
  Receipt Date: 20090601
  Transmission Date: 20091009
  Serious: No
  Sender: FDA-Public Use
  Company Number: None

PATIENT
  Sex: Male
  Weight: 97.7 kg

DRUGS (1)
  1. FLUVOXAMINE MALEATE [Suspect]
     Indication: OBSESSIVE-COMPULSIVE DISORDER
     Dosage: 100MG 2X/DAY ORAL FEW WEEKS UNTIL NOW.
     Route: 048

REACTIONS (2)
  - FATIGUE [None]
  - PRODUCT SUBSTITUTION ISSUE [None]
